FAERS Safety Report 7716795-5 (Version None)
Quarter: 2011Q3

REPORT INFORMATION
  Report Type: 
  Country: None (occurrence: None)
  Receive Date: 20110829
  Receipt Date: 20110818
  Transmission Date: 20111222
  Serious: Yes (Other)
  Sender: FDA-Public Use
  Company Number: US-ASTRAZENECA-2005UW06245

PATIENT
  Age: 80 Year
  Sex: Female
  Weight: 62.6 kg

DRUGS (4)
  1. TOPROL-XL [Suspect]
     Indication: HYPERTENSION
     Route: 048
  2. TOPROL-XL [Suspect]
     Route: 048
  3. CARDIZEM [Concomitant]
  4. TOPROL-XL [Suspect]
     Route: 048

REACTIONS (4)
  - MALAISE [None]
  - NEOPLASM MALIGNANT [None]
  - INFLUENZA [None]
  - COUGH [None]
